FAERS Safety Report 19578257 (Version 3)
Quarter: 2021Q3

REPORT INFORMATION
  Report Type: Report from Study
  Country: FR (occurrence: FR)
  Receive Date: 20210719
  Receipt Date: 20210831
  Transmission Date: 20211014
  Serious: Yes (Disabling, Other)
  Sender: FDA-Public Use
  Company Number: FR-TAKEDA-FR201818013

PATIENT
  Age: 72 Year
  Sex: Male
  Weight: 58 kg

DRUGS (20)
  1. TAZOCILLINE [Concomitant]
     Active Substance: PIPERACILLIN SODIUM\TAZOBACTAM SODIUM
     Indication: DERMATITIS INFECTED
     Dosage: 999 UNK
     Route: 042
     Dates: start: 201806, end: 201806
  2. TEDUGLUTIDE [Suspect]
     Active Substance: TEDUGLUTIDE
     Indication: SHORT-BOWEL SYNDROME
     Dosage: 2.85 MG, 1X/DAY:QD (DAILY DOSE MG KG  0.05, DOSES PER WEEK 7)
     Route: 065
     Dates: start: 20160115, end: 20170706
  3. TEDUGLUTIDE [Suspect]
     Active Substance: TEDUGLUTIDE
     Indication: SHORT-BOWEL SYNDROME
     Dosage: 2.85 MG, 1X/DAY:QD (DAILY DOSE MG KG  0.05, DOSES PER WEEK 7)
     Route: 065
     Dates: start: 20160115, end: 20170706
  4. TEDUGLUTIDE [Suspect]
     Active Substance: TEDUGLUTIDE
     Dosage: 2.85 MG, 1X/DAY:QD  (DAILY DOSE MG KG  0.05, DOSES PER WEEK 3)
     Route: 065
     Dates: start: 20170706, end: 20170901
  5. VANCOMYCINE [Concomitant]
     Active Substance: VANCOMYCIN
     Indication: DERMATITIS INFECTED
     Dosage: 999 UNK
     Route: 042
     Dates: start: 201806, end: 201806
  6. TEDUGLUTIDE [Suspect]
     Active Substance: TEDUGLUTIDE
     Dosage: 2.85 MG, 1X/DAY:QD  (DAILY DOSE MG KG  0.05, DOSES PER WEEK 3)
     Route: 065
     Dates: start: 20170706, end: 20170901
  7. LOPERAMIDE [Concomitant]
     Active Substance: LOPERAMIDE
     Indication: DIARRHOEA
     Dosage: UNK
     Route: 065
  8. TEDUGLUTIDE [Suspect]
     Active Substance: TEDUGLUTIDE
     Dosage: 2.8 MILLIGRAM (0.05 MG/KG), 7 DOSES PER WEEK
     Route: 065
     Dates: start: 20180108
  9. QUESTRAN [Concomitant]
     Active Substance: CHOLESTYRAMINE
     Indication: DIARRHOEA
     Dosage: UNK
     Route: 065
  10. TEDUGLUTIDE [Suspect]
     Active Substance: TEDUGLUTIDE
     Dosage: 2.8 MILLIGRAM (0.05 MG/KG), 7 DOSES PER WEEK
     Route: 065
     Dates: start: 20180108
  11. VITAMIN B12 [Concomitant]
     Active Substance: CYANOCOBALAMIN
     Indication: SUPPLEMENTATION THERAPY
     Dosage: UNK
     Route: 065
  12. TEDUGLUTIDE [Suspect]
     Active Substance: TEDUGLUTIDE
     Indication: SHORT-BOWEL SYNDROME
     Dosage: 2.85 MG, 1X/DAY:QD (DAILY DOSE MG KG  0.05, DOSES PER WEEK 7)
     Route: 065
     Dates: start: 20160115, end: 20170706
  13. TEDUGLUTIDE [Suspect]
     Active Substance: TEDUGLUTIDE
     Dosage: 2.85 MG, 1X/DAY:QD  (DAILY DOSE MG KG  0.05, DOSES PER WEEK 3)
     Route: 065
     Dates: start: 20170706, end: 20170901
  14. TEDUGLUTIDE [Suspect]
     Active Substance: TEDUGLUTIDE
     Dosage: 2.8 MILLIGRAM (0.05 MG/KG), 7 DOSES PER WEEK
     Route: 065
     Dates: start: 20180108
  15. ZYVOXID [Concomitant]
     Active Substance: LINEZOLID
     Indication: DERMATITIS INFECTED
     Dosage: 999 UNK
     Route: 048
     Dates: start: 201806, end: 201806
  16. TEDUGLUTIDE [Suspect]
     Active Substance: TEDUGLUTIDE
     Dosage: 2.85 MG, 1X/DAY:QD  (DAILY DOSE MG KG  0.05, DOSES PER WEEK 3)
     Route: 065
     Dates: start: 20170706, end: 20170901
  17. TEDUGLUTIDE [Suspect]
     Active Substance: TEDUGLUTIDE
     Dosage: 2.8 MILLIGRAM (0.05 MG/KG), 7 DOSES PER WEEK
     Route: 065
     Dates: start: 20180108
  18. VITAMIN D3 [Concomitant]
     Active Substance: CHOLECALCIFEROL
     Indication: SUPPLEMENTATION THERAPY
     Dosage: UNK
     Route: 065
  19. TEDUGLUTIDE [Suspect]
     Active Substance: TEDUGLUTIDE
     Indication: SHORT-BOWEL SYNDROME
     Dosage: 2.85 MG, 1X/DAY:QD (DAILY DOSE MG KG  0.05, DOSES PER WEEK 7)
     Route: 065
     Dates: start: 20160115, end: 20170706
  20. VANCOMYCINE [Concomitant]
     Active Substance: VANCOMYCIN
     Indication: DEVICE RELATED INFECTION
     Dosage: 30 MILLIGRAM/KILOGRAM, QD
     Route: 042
     Dates: start: 20170803, end: 20170813

REACTIONS (3)
  - Anaemia [Not Recovered/Not Resolved]
  - Diarrhoea [Recovered/Resolved]
  - Aortic dissection [Not Recovered/Not Resolved]

NARRATIVE: CASE EVENT DATE: 20171001
